FAERS Safety Report 7799196-3 (Version None)
Quarter: 2011Q4

REPORT INFORMATION
  Report Type: 
  Country: None (occurrence: None)
  Receive Date: 20111006
  Receipt Date: 20111003
  Transmission Date: 20120403
  Serious: Yes (Other)
  Sender: FDA-Public Use
  Company Number: US-PFIZER INC-2011212907

PATIENT
  Sex: Female
  Weight: 68 kg

DRUGS (5)
  1. TIKOSYN [Suspect]
     Indication: HEART RATE IRREGULAR
     Dosage: 500 UG, 2X/DAY
     Route: 048
     Dates: start: 20080801
  2. NIASPAN [Concomitant]
     Indication: BLOOD CHOLESTEROL INCREASED
     Dosage: 500 MG, 1X/DAY
  3. BABYPRIN [Concomitant]
     Dosage: UNK
  4. FUROSEMIDE [Concomitant]
     Dosage: 40 MG, 1X/DAY
  5. CARVEDILOL [Concomitant]
     Indication: HYPERTENSION
     Dosage: 6.25 MG, 2X/DAY

REACTIONS (6)
  - BLOOD CHOLESTEROL INCREASED [None]
  - AGITATION [None]
  - FEELING ABNORMAL [None]
  - DRUG DOSE OMISSION [None]
  - DIZZINESS [None]
  - ATRIAL FIBRILLATION [None]
